FAERS Safety Report 14120434 (Version 3)
Quarter: 2017Q4

REPORT INFORMATION
  Report Type: Report from Study
  Country: US (occurrence: US)
  Receive Date: 20171024
  Receipt Date: 20171229
  Transmission Date: 20180321
  Serious: Yes (Death, Hospitalization)
  Sender: FDA-Public Use
  Company Number: US-PFIZER INC-2017446112

PATIENT
  Age: 68 Year
  Sex: Male
  Weight: 76.8 kg

DRUGS (1)
  1. CRIZOTINIB [Suspect]
     Active Substance: CRIZOTINIB
     Indication: PAPILLARY RENAL CELL CARCINOMA
     Dosage: 250 MG, 2X/DAY, CYCLIC (CYCLE= 42 DAYS)
     Route: 048
     Dates: start: 20170828, end: 20171003

REACTIONS (7)
  - Dyspnoea [Recovered/Resolved]
  - Presyncope [Unknown]
  - Fatigue [Unknown]
  - Face oedema [Recovered/Resolved]
  - Neoplasm progression [Fatal]
  - Hypersensitivity [Recovered/Resolved]
  - Oedema peripheral [Recovered/Resolved]

NARRATIVE: CASE EVENT DATE: 20171004
